FAERS Safety Report 6665924-3 (Version None)
Quarter: 2010Q2

REPORT INFORMATION
  Report Type: 
  Country: None (occurrence: None)
  Receive Date: 20100402
  Receipt Date: 20100323
  Transmission Date: 20101027
  Serious: Yes (Other)
  Sender: FDA-Public Use
  Company Number: CN-PFIZER INC-2010036773

PATIENT
  Age: 47 Year
  Sex: Male

DRUGS (1)
  1. CHAMPIX [Suspect]
     Dosage: UNK
     Route: 048
     Dates: start: 20100201, end: 20100301

REACTIONS (5)
  - ABNORMAL DREAMS [None]
  - ERYTHEMA [None]
  - PRURITUS GENERALISED [None]
  - SWELLING [None]
  - SWELLING FACE [None]
